FAERS Safety Report 21647972 (Version 1)
Quarter: 2022Q4

REPORT INFORMATION
  Report Type: Report from Study
  Country: CA (occurrence: CA)
  Receive Date: 20221128
  Receipt Date: 20221128
  Transmission Date: 20230113
  Serious: Yes (Disabling)
  Sender: FDA-Public Use
  Company Number: CA-BIOGEN-2022BI01171146

PATIENT
  Age: 21 Year
  Sex: Female

DRUGS (1)
  1. SPINRAZA [Suspect]
     Active Substance: NUSINERSEN
     Indication: Spinal muscular atrophy
     Route: 050

REACTIONS (7)
  - Nerve injury [Recovered/Resolved]
  - Therapeutic response shortened [Recovered/Resolved]
  - Nausea [Unknown]
  - Feeding disorder [Unknown]
  - Asthenia [Unknown]
  - Post lumbar puncture syndrome [Recovered/Resolved]
  - Vomiting [Unknown]

NARRATIVE: CASE EVENT DATE: 20170501
